FAERS Safety Report 15239667 (Version 1)
Quarter: 2018Q3

REPORT INFORMATION
  Report Type: Spontaneous
  Country: US (occurrence: US)
  Receive Date: 20180710
  Receipt Date: 20180710
  Transmission Date: 20181010
  Serious: Yes (Other)
  Sender: FDA-Public Use
  Company Number: None

PATIENT
  Age: 43 Year
  Sex: Female

DRUGS (1)
  1. HUMALOG [Suspect]
     Active Substance: INSULIN LISPRO
     Indication: DIABETES MELLITUS
     Dosage: INJECT UP TO 50 UNITS PER DAY VIA INSULIN PUMP
     Dates: start: 20180630

REACTIONS (5)
  - Fatigue [None]
  - Drug ineffective [None]
  - Paraesthesia [None]
  - Burning sensation [None]
  - Nausea [None]

NARRATIVE: CASE EVENT DATE: 20180630
